FAERS Safety Report 4614044-8 (Version None)
Quarter: 2005Q1

REPORT INFORMATION
  Report Type: 
  Country: None (occurrence: None)
  Receive Date: 20050316
  Receipt Date: 20050302
  Transmission Date: 20050727
  Serious: Yes (Life-Threatening)
  Sender: FDA-Public Use
  Company Number: JP_050306011

PATIENT
  Age: 89 Year
  Sex: Female

DRUGS (2)
  1. PERMAX [Suspect]
     Indication: PARKINSONISM
     Dosage: 50 UG DAY
     Dates: start: 20050301, end: 20050301
  2. SYMMETREL [Concomitant]

REACTIONS (1)
  - STATUS EPILEPTICUS [None]
